FAERS Safety Report 7297865-5 (Version None)
Quarter: 2011Q1

REPORT INFORMATION
  Report Type: 
  Country: None (occurrence: None)
  Receive Date: 20110217
  Receipt Date: 20101104
  Transmission Date: 20110831
  Serious: No
  Sender: FDA-Public Use
  Company Number: US-KINGPHARMUSA00001-K201001358

PATIENT
  Age: 46 Year
  Sex: Female
  Weight: 63.039 kg

DRUGS (7)
  1. FENTANYL RENAUDIN [Concomitant]
  2. PANCREASE [Concomitant]
  3. PERCOCET [Concomitant]
  4. RISPERDONE [Concomitant]
  5. FLECTOR [Suspect]
     Indication: BACK PAIN
     Dosage: 1 PATCH, Q12H
     Route: 061
     Dates: start: 20101001, end: 20101001
  6. FLECTOR [Suspect]
     Indication: SPINAL FRACTURE
  7. PAXIL [Concomitant]

REACTIONS (5)
  - MUSCLE TWITCHING [None]
  - PAIN [None]
  - DYSKINESIA [None]
  - CHEST DISCOMFORT [None]
  - MUSCLE SPASMS [None]
